FAERS Safety Report 5693519-7 (Version None)
Quarter: 2008Q2

REPORT INFORMATION
  Report Type: 
  Country: None (occurrence: None)
  Receive Date: 20080403
  Receipt Date: 20080327
  Transmission Date: 20081010
  Serious: Yes (Other)
  Sender: FDA-Public Use
  Company Number: B0514367A

PATIENT
  Age: 53 Year
  Sex: Female

DRUGS (1)
  1. FORMIGRAN [Suspect]
     Indication: MIGRAINE
     Dosage: 1TAB PER DAY
     Route: 065
     Dates: end: 20080101

REACTIONS (3)
  - ANXIETY [None]
  - ARRHYTHMIA [None]
  - INSOMNIA [None]
